FAERS Safety Report 12047939 (Version 1)
Quarter: 2016Q1

REPORT INFORMATION
  Report Type: Report from Study
  Country: US (occurrence: US)
  Receive Date: 20160208
  Receipt Date: 20160208
  Transmission Date: 20160526
  Serious: Yes (Other)
  Sender: FDA-Public Use
  Company Number: US-AMGEN-USASL2016012186

PATIENT
  Age: 61 Year
  Sex: Male

DRUGS (1)
  1. ENBREL [Suspect]
     Active Substance: ETANERCEPT
     Indication: RHEUMATOID ARTHRITIS
     Dosage: 50 MG, QWK
     Route: 065
     Dates: start: 201510

REACTIONS (13)
  - Migraine [Unknown]
  - Contusion [Unknown]
  - Back disorder [Unknown]
  - Carpal tunnel syndrome [Unknown]
  - Torticollis [Unknown]
  - Limb operation [Unknown]
  - Fatigue [Recovered/Resolved]
  - Neuropathy peripheral [Unknown]
  - Hypotension [Unknown]
  - Atrial fibrillation [Unknown]
  - Peripheral coldness [Recovering/Resolving]
  - Fibromyalgia [Unknown]
  - Feeling cold [Recovering/Resolving]

NARRATIVE: CASE EVENT DATE: 20151231
